FAERS Safety Report 23916789 (Version 5)
Quarter: 2024Q4

REPORT INFORMATION
  Report Type: Spontaneous
  Country: GR (occurrence: GR)
  Receive Date: 20240529
  Receipt Date: 20241211
  Transmission Date: 20250115
  Serious: No
  Sender: PFIZER
  Company Number: GR-PFIZER INC-202400178687

PATIENT
  Age: 10 Year
  Sex: Female
  Weight: 25 kg

DRUGS (3)
  1. GENOTROPIN [Suspect]
     Active Substance: SOMATROPIN
     Indication: Growth hormone deficiency
     Dosage: 5 MG, WEEKLY / 7 DAYS / 12 MG PEN
     Route: 058
     Dates: start: 202311
  2. GENOTROPIN [Suspect]
     Active Substance: SOMATROPIN
     Dosage: 12 MG, WEEKLY / 7 DAYS / 12 MG PEN
     Route: 058
  3. ARVECAP [Concomitant]
     Indication: Puberty
     Dosage: INJ PER 2 MONTHS

REACTIONS (5)
  - Device defective [Unknown]
  - Device leakage [Unknown]
  - Device issue [Unknown]
  - Wrong technique in device usage process [Unknown]
  - Device use error [Unknown]
